FAERS Safety Report 11634259 (Version 1)
Quarter: 2015Q4

REPORT INFORMATION
  Report Type: Other
  Country: None (occurrence: TR)
  Receive Date: 20151015
  Receipt Date: 20151015
  Transmission Date: 20160304
  Serious: Yes (Hospitalization)
  Sender: FDA-Public Use
  Company Number: TR-TRIS PHARMA, INC.-1043004

PATIENT
  Age: 74 Year
  Sex: Male

DRUGS (6)
  1. LEVETIRACETAM. [Suspect]
     Active Substance: LEVETIRACETAM
     Indication: EPILEPSY
  2. FUROSEMIDE. [Concomitant]
     Active Substance: FUROSEMIDE
  3. WARFARIN [Concomitant]
     Active Substance: WARFARIN
  4. SPIRONOLACTONE AND HYDROCHLOROTHIAZIDE [Concomitant]
     Active Substance: HYDROCHLOROTHIAZIDE\SPIRONOLACTONE
  5. CARVEDILOL. [Concomitant]
     Active Substance: CARVEDILOL
  6. TRANDOLAPRIL. [Concomitant]
     Active Substance: TRANDOLAPRIL

REACTIONS (5)
  - Lethargy [Recovered/Resolved]
  - Confusional state [Recovered/Resolved]
  - Pallor [Recovered/Resolved]
  - Cardiac failure congestive [None]
  - Hyponatraemia [Recovered/Resolved]
